FAERS Safety Report 12236551 (Version 2)
Quarter: 2016Q2

REPORT INFORMATION
  Report Type: Spontaneous
  Country: US (occurrence: US)
  Receive Date: 20160405
  Receipt Date: 20160422
  Transmission Date: 20160815
  Serious: No
  Sender: FDA-Public Use
  Company Number: US-ASTRAZENECA-2016SE32422

PATIENT
  Age: 25010 Day
  Sex: Female
  Weight: 56.7 kg

DRUGS (1)
  1. BYDUREON [Suspect]
     Active Substance: EXENATIDE
     Indication: TYPE 2 DIABETES MELLITUS
     Route: 058
     Dates: start: 20160317

REACTIONS (2)
  - Product quality issue [Unknown]
  - Urticaria [Unknown]

NARRATIVE: CASE EVENT DATE: 20160324
